FAERS Safety Report 8362965-5 (Version None)
Quarter: 2012Q2

REPORT INFORMATION
  Report Type: 
  Country: None (occurrence: None)
  Receive Date: 20120516
  Receipt Date: 20110913
  Transmission Date: 20120825
  Serious: No
  Sender: FDA-Public Use
  Company Number: US-ALEXION-A201101396

PATIENT
  Sex: Male
  Weight: 139.23 kg

DRUGS (15)
  1. SOLIRIS [Suspect]
     Dosage: 900 MG, Q2W
     Route: 042
     Dates: start: 20101229
  2. METOPROLOL SUCCINATE [Concomitant]
     Dosage: 12.5 MG, QD
  3. SOLIRIS [Suspect]
     Dosage: 900 MG, EVERY 12 DAYS
     Route: 042
     Dates: start: 20110831
  4. PRESERVISION LUTEIN EYE VITA.+MIN.SUP.SOFTG. [Concomitant]
     Dosage: 226 MG, 1-2 BID
  5. VITAMIN B-12 [Concomitant]
     Dosage: 2.500 MCG, QOD UNDER THE TONGUE
     Route: 060
  6. LOPERAMIDE [Concomitant]
     Dosage: 2 MG QID PRN
  7. FUROSEMIDE [Concomitant]
     Dosage: 40 MG, QOD
  8. UROXATRAL [Concomitant]
     Dosage: 10 MG, QD
  9. DANAZOL [Concomitant]
     Dosage: 200 MG, TID
  10. EUCERIN [Concomitant]
     Dosage: UNK, TID PRN
  11. FOLIC ACID [Concomitant]
     Dosage: 1 MG, QD
  12. PILOCARPINE [Concomitant]
     Dosage: 1 GTT, QD
  13. POTASSIUM CHLORIDE [Concomitant]
     Dosage: 20 MEQ, QOD
  14. SOLIRIS [Suspect]
     Indication: PAROXYSMAL NOCTURNAL HAEMOGLOBINURIA
     Dosage: 600 MG, Q2W
     Route: 042
     Dates: start: 20101101
  15. VITAMIN B6 [Concomitant]
     Dosage: 50 MG, QD

REACTIONS (7)
  - FALL [None]
  - ASTHENIA [None]
  - DIARRHOEA [None]
  - BLOOD LACTATE DEHYDROGENASE INCREASED [None]
  - HAEMOLYSIS [None]
  - FATIGUE [None]
  - PAIN IN EXTREMITY [None]
